FAERS Safety Report 23626695 (Version 1)
Quarter: 2024Q1

REPORT INFORMATION
  Report Type: Spontaneous
  Country: CL (occurrence: CL)
  Receive Date: 20240313
  Receipt Date: 20240313
  Transmission Date: 20240410
  Serious: Yes (Hospitalization, Other)
  Sender: FDA-Public Use
  Company Number: CL-JNJFOC-20240319921

PATIENT
  Sex: Female

DRUGS (2)
  1. INFLIXIMAB [Suspect]
     Active Substance: INFLIXIMAB
     Indication: Crohn^s disease
     Dosage: STARTED IN AUGUST (UNSPECIFIED YEAR) AND COMPLETING NINE DOSES UNTIL FEB-2024
     Route: 041
  2. REMICADE [Suspect]
     Active Substance: INFLIXIMAB
     Indication: Crohn^s disease
     Dosage: STARTED IN AUGUST (UNSPECIFIED YEAR) AND COMPLETING NINE DOSES UNTIL FEB-2024
     Route: 041

REACTIONS (4)
  - Anal fistula [Unknown]
  - Crohn^s disease [Unknown]
  - Drug ineffective [Unknown]
  - Off label use [Unknown]
